FAERS Safety Report 8793273 (Version 1)
Quarter: 2012Q4

REPORT INFORMATION
  Report Type: 
  Country: NO (occurrence: NO)
  Receive Date: 20120917
  Receipt Date: 20120917
  Transmission Date: 20130627
  Serious: Yes (Hospitalization)
  Sender: FDA-Public Use
  Company Number: NO-ASTRAZENECA-2012SE70544

PATIENT
  Age: 45 Year
  Sex: Female

DRUGS (2)
  1. XYLOCAIN [Suspect]
     Indication: ALLERGY TEST
     Dosage: 10 MG/ML, 1 ML ONCE/SINGLE ADMINISTRATION
     Route: 058
     Dates: start: 20120828, end: 20120828
  2. MARCAIN [Suspect]

REACTIONS (6)
  - Pruritus [Recovered/Resolved]
  - Eyelid function disorder [Recovered/Resolved]
  - Fatigue [Recovered/Resolved]
  - Sensation of pressure [Recovered/Resolved]
  - Discomfort [Recovered/Resolved]
  - Hypersensitivity [Unknown]
